FAERS Safety Report 5450686-8 (Version None)
Quarter: 2007Q3

REPORT INFORMATION
  Report Type: 
  Country: None (occurrence: None)
  Receive Date: 20070910
  Receipt Date: 20070831
  Transmission Date: 20080115
  Serious: Yes (Other)
  Sender: FDA-Public Use
  Company Number: CHPA2007US09299

PATIENT
  Age: 1 Year
  Sex: Male

DRUGS (1)
  1. TRIAMINIC NIGHT TIME COLD + COUGH (NCH)(DIPHENHYDRAMINE, PHENYLEPHRINE [Suspect]
     Indication: NASOPHARYNGITIS
     Dosage: 0.5 TSP, QHS, ORAL
     Route: 048
     Dates: start: 20070828, end: 20070830

REACTIONS (1)
  - BLISTER [None]
